FAERS Safety Report 23388350 (Version 1)
Quarter: 2024Q1

REPORT INFORMATION
  Report Type: Spontaneous
  Country: PK (occurrence: PK)
  Receive Date: 20240110
  Receipt Date: 20240110
  Transmission Date: 20240410
  Serious: Yes (Death)
  Sender: FDA-Public Use
  Company Number: PK-PFIZER INC-PV202300136599

PATIENT
  Age: 67 Year
  Sex: Female

DRUGS (2)
  1. IBRANCE [Suspect]
     Active Substance: PALBOCICLIB
     Indication: Breast cancer metastatic
     Dosage: 100MG, 1 OD 3 WEEKS ON 7 DAYS REST
     Route: 048
     Dates: start: 20230807, end: 20230925
  2. FULVESTRANT [Concomitant]
     Active Substance: FULVESTRANT
     Dosage: 250 MG(2 INJECTION X IM D1, D14, D28 THEN EVERY 4 WEEKS )

REACTIONS (1)
  - Death [Fatal]
